FAERS Safety Report 5631096-7 (Version None)
Quarter: 2008Q1

REPORT INFORMATION
  Report Type: 
  Country: None (occurrence: None)
  Receive Date: 20080219
  Receipt Date: 20080209
  Transmission Date: 20080703
  Serious: Yes (Other)
  Sender: FDA-Public Use
  Company Number: US-PFIZER INC-2008012513

PATIENT
  Sex: Male
  Weight: 91 kg

DRUGS (11)
  1. CELEBREX [Suspect]
     Indication: BACK PAIN
     Route: 048
     Dates: start: 20080208, end: 20080208
  2. CELEBREX [Suspect]
     Indication: ARTHRALGIA
  3. CARVEDILOL [Concomitant]
     Indication: BLOOD PRESSURE ABNORMAL
  4. QUINAPRIL HCL [Concomitant]
     Indication: BLOOD PRESSURE ABNORMAL
  5. ZOCOR [Concomitant]
     Indication: CARDIAC DISORDER
  6. PLAVIX [Concomitant]
     Indication: CARDIAC DISORDER
  7. OMEPRAZOLE [Concomitant]
     Indication: GASTROOESOPHAGEAL REFLUX DISEASE
  8. TAMSULOSIN HCL [Concomitant]
     Indication: PROSTATIC DISORDER
  9. ALLOPURINOL [Concomitant]
     Indication: GOUT
  10. FUROSEMIDE [Concomitant]
  11. ASPIRIN [Concomitant]

REACTIONS (6)
  - CEREBROVASCULAR ACCIDENT [None]
  - DISORIENTATION [None]
  - DIZZINESS [None]
  - MALAISE [None]
  - PALLOR [None]
  - SPEECH DISORDER [None]
